FAERS Safety Report 19312648 (Version 1)
Quarter: 2021Q2

REPORT INFORMATION
  Report Type: Spontaneous
  Country: US (occurrence: US)
  Receive Date: 20210527
  Receipt Date: 20210527
  Transmission Date: 20210717
  Serious: No
  Sender: FDA-Public Use
  Company Number: US-BRISTOL-MYERS SQUIBB COMPANY-BMS-2021-049696

PATIENT
  Age: 72 Year
  Sex: Female

DRUGS (2)
  1. SPRYCEL [Suspect]
     Active Substance: DASATINIB
     Dosage: 70 UNK
     Route: 048
     Dates: start: 201807, end: 20210426
  2. SPRYCEL [Suspect]
     Active Substance: DASATINIB
     Indication: CHRONIC MYELOID LEUKAEMIA
     Dosage: 100 MILLIGRAM, QD
     Route: 048
     Dates: start: 201703, end: 201807

REACTIONS (1)
  - Pleural effusion [Unknown]

NARRATIVE: CASE EVENT DATE: 201807
